FAERS Safety Report 26145855 (Version 1)
Quarter: 2025Q4

REPORT INFORMATION
  Report Type: Spontaneous
  Country: US (occurrence: US)
  Receive Date: 20251211
  Receipt Date: 20251211
  Transmission Date: 20260117
  Serious: No
  Sender: SANOFI AVENTIS
  Company Number: US-SA-2025SA365904

PATIENT
  Age: 14 Year
  Sex: Female

DRUGS (2)
  1. DUPIXENT [Suspect]
     Active Substance: DUPILUMAB
     Indication: Dermatitis atopic
     Dosage: 400 MG, 1X
     Route: 065
     Dates: start: 202509, end: 202509
  2. DUPIXENT [Suspect]
     Active Substance: DUPILUMAB
     Dosage: 200 MG, QOW
     Route: 065
     Dates: start: 2025

REACTIONS (2)
  - Injection site erythema [Unknown]
  - Injection site swelling [Unknown]

NARRATIVE: CASE EVENT DATE: 20250101
